FAERS Safety Report 4491313-6 (Version None)
Quarter: 2004Q4

REPORT INFORMATION
  Report Type: 
  Country: None (occurrence: None)
  Receive Date: 20041101
  Receipt Date: 20041018
  Transmission Date: 20050328
  Serious: Yes (Death)
  Sender: FDA-Public Use
  Company Number: WAES 0410USA03496

PATIENT
  Age: 78 Year
  Sex: Female

DRUGS (4)
  1. COZAAR [Suspect]
     Indication: HYPERTENSION
     Dosage: 50 MG/DAILY
     Route: 048
     Dates: start: 20001115, end: 20040512
  2. GLYBURIDE [Suspect]
     Indication: DIABETES MELLITUS
     Dosage: 1.25 MG/DAY
     Route: 048
     Dates: end: 20040512
  3. GLUCOBAY [Concomitant]
  4. LIPITOR [Concomitant]

REACTIONS (1)
  - DEATH [None]
